FAERS Safety Report 5472350-1 (Version None)
Quarter: 2007Q3

REPORT INFORMATION
  Report Type: 
  Country: None (occurrence: None)
  Receive Date: 20070930
  Receipt Date: 20070918
  Transmission Date: 20080115
  Serious: Yes (Other)
  Sender: FDA-Public Use
  Company Number: US-SHR-US-2007-035174

PATIENT
  Age: 55 Year
  Sex: Female
  Weight: 61.224 kg

DRUGS (8)
  1. LEUKINE [Suspect]
     Indication: BREAST CANCER
     Dosage: 400 MCG
     Route: 058
     Dates: start: 20070710, end: 20070713
  2. LEUKINE [Suspect]
     Dosage: 400 MCG
     Route: 058
     Dates: start: 20070731, end: 20070803
  3. CARBOPLATIN [Concomitant]
     Dosage: 460 UNK, UNK
     Route: 042
  4. HERCEPTIN [Concomitant]
     Dosage: 50 MG, UNK
     Route: 042
  5. EMEND [Concomitant]
     Route: 048
  6. DECADRON                                /CAN/ [Concomitant]
     Dosage: 4 MG, 2X/DAY
  7. KYTRIL [Concomitant]
     Dosage: 1 MG, 2X/DAY
  8. TAXOTERE [Concomitant]
     Dosage: 120 MG
     Dates: start: 20070709, end: 20070730

REACTIONS (1)
  - DISORIENTATION [None]
